FAERS Safety Report 6016900-5 (Version None)
Quarter: 2008Q4

REPORT INFORMATION
  Report Type: 
  Country: None (occurrence: None)
  Receive Date: 20081219
  Receipt Date: 20081208
  Transmission Date: 20090506
  Serious: Yes (Other)
  Sender: FDA-Public Use
  Company Number: MC200800578

PATIENT

DRUGS (2)
  1. ANGIOMAX [Suspect]
     Indication: ACUTE CORONARY SYNDROME
     Dosage: 0.75 MG/KG, BOLUS, INTRAVENOUS; 1.75 MG/KG, HR, INTRAVENOUS
     Route: 042
  2. ANGIOMAX [Suspect]
     Indication: PERCUTANEOUS CORONARY INTERVENTION
     Dosage: 0.75 MG/KG, BOLUS, INTRAVENOUS; 1.75 MG/KG, HR, INTRAVENOUS
     Route: 042

REACTIONS (3)
  - CORONARY ARTERY DISSECTION [None]
  - CORONARY ARTERY INSUFFICIENCY [None]
  - THROMBOSIS [None]
